FAERS Safety Report 10233711 (Version 1)
Quarter: 2014Q2

REPORT INFORMATION
  Report Type: Spontaneous
  Country: BR (occurrence: BR)
  Receive Date: 20140612
  Receipt Date: 20140612
  Transmission Date: 20141212
  Serious: Yes (Hospitalization, Other)
  Sender: FDA-Public Use
  Company Number: BR-ACTAVIS-2014-12831

PATIENT
  Age: 45 Year
  Sex: Female

DRUGS (1)
  1. PHENYTOIN (AMALLC) [Suspect]
     Indication: PROPHYLAXIS
     Dosage: UNKNOWN
     Route: 065

REACTIONS (2)
  - Drug reaction with eosinophilia and systemic symptoms [Recovered/Resolved]
  - Epstein-Barr virus infection [Recovered/Resolved]
